FAERS Safety Report 17562608 (Version 1)
Quarter: 2020Q1

REPORT INFORMATION
  Report Type: Other
  Country: CA (occurrence: CA)
  Receive Date: 20200319
  Receipt Date: 20200319
  Transmission Date: 20200409
  Serious: Yes (Death, Hospitalization)
  Sender: FDA-Public Use
  Company Number: CA-INCYTE CORPORATION-2020IN002335

PATIENT

DRUGS (6)
  1. JAKAVI [Suspect]
     Active Substance: RUXOLITINIB
     Indication: MYELOFIBROSIS
     Dosage: 5 MG, BID
     Route: 048
  2. MORPHINE [Suspect]
     Active Substance: MORPHINE
     Indication: ARTHRALGIA
  3. MORPHINE [Suspect]
     Active Substance: MORPHINE
     Indication: PAIN IN EXTREMITY
     Dosage: UNK
     Route: 065
  4. MORPHINE [Suspect]
     Active Substance: MORPHINE
     Indication: BACK PAIN
  5. MORPHINE [Suspect]
     Active Substance: MORPHINE
     Indication: ABDOMINAL PAIN UPPER
  6. EPREX [Concomitant]
     Active Substance: ERYTHROPOIETIN
     Indication: PRODUCT USED FOR UNKNOWN INDICATION
     Dosage: UNK
     Route: 042

REACTIONS (23)
  - Abdominal pain upper [Fatal]
  - Splenomegaly [Fatal]
  - Drug ineffective [Fatal]
  - Vomiting [Fatal]
  - Back pain [Fatal]
  - Dehydration [Fatal]
  - Loss of consciousness [Fatal]
  - Pain in extremity [Fatal]
  - Anaemia [Fatal]
  - Joint swelling [Fatal]
  - Abdominal pain [Fatal]
  - Eating disorder [Fatal]
  - Pain [Fatal]
  - Skin discolouration [Fatal]
  - Weight increased [Fatal]
  - Asthenia [Fatal]
  - Night sweats [Fatal]
  - Decreased appetite [Fatal]
  - Dizziness [Fatal]
  - Muscle spasms [Fatal]
  - Weight decreased [Fatal]
  - Arthralgia [Fatal]
  - Concomitant disease aggravated [Fatal]
